FAERS Safety Report 7304724-8 (Version None)
Quarter: 2011Q1

REPORT INFORMATION
  Report Type: 
  Country: None (occurrence: None)
  Receive Date: 20110222
  Receipt Date: 20110220
  Transmission Date: 20110831
  Serious: No
  Sender: FDA-Public Use
  Company Number: US-PFIZER INC-2011036832

PATIENT
  Sex: Male
  Weight: 73 kg

DRUGS (7)
  1. KLONOPIN [Concomitant]
     Indication: SOCIAL PHOBIA
  2. CHANTIX [Suspect]
     Indication: SMOKING CESSATION THERAPY
     Dosage: 0.5 MG, 1X/DAY
     Route: 048
     Dates: start: 20110213, end: 20110218
  3. ACIPHEX [Concomitant]
     Indication: GASTROOESOPHAGEAL REFLUX DISEASE
  4. AMITRIPTYLINE [Concomitant]
     Indication: INSOMNIA
     Dosage: 25-50MG ORALLY DAILY
     Route: 048
  5. CHANTIX [Suspect]
     Dosage: 1 MG, 2X/DAY
     Route: 048
     Dates: start: 20110219
  6. ACIPHEX [Concomitant]
     Indication: DYSPEPSIA
     Dosage: 25 MG, AS NEEDED
     Route: 048
  7. KLONOPIN [Concomitant]
     Indication: DEPRESSION
     Dosage: 1 MG, 3X/DAY
     Route: 048

REACTIONS (1)
  - NAUSEA [None]
